FAERS Safety Report 6183909-0 (Version None)
Quarter: 2009Q2

REPORT INFORMATION
  Report Type: 
  Country: None (occurrence: None)
  Receive Date: 20090508
  Receipt Date: 20090429
  Transmission Date: 20091009
  Serious: Yes (Hospitalization)
  Sender: FDA-Public Use
  Company Number: US-AMGEN-QUU345040

PATIENT
  Sex: Male

DRUGS (1)
  1. ENBREL [Suspect]
     Indication: ANKYLOSING SPONDYLITIS
     Route: 058
     Dates: end: 20090408

REACTIONS (6)
  - ANKYLOSING SPONDYLITIS [None]
  - COLLAPSE OF LUNG [None]
  - INJECTION SITE INDURATION [None]
  - INJECTION SITE PAIN [None]
  - PROCEDURAL COMPLICATION [None]
  - SARCOIDOSIS [None]
